FAERS Safety Report 7571494-8 (Version None)
Quarter: 2011Q2

REPORT INFORMATION
  Report Type: 
  Country: None (occurrence: None)
  Receive Date: 20110624
  Receipt Date: 20110610
  Transmission Date: 20111010
  Serious: Yes (Hospitalization)
  Sender: FDA-Public Use
  Company Number: IE-JNJFOC-20110605967

PATIENT
  Age: 41 Year
  Sex: Female

DRUGS (11)
  1. REMICADE [Suspect]
     Route: 042
     Dates: start: 20110408
  2. CHLORPHENIRAMINE MALEATE [Concomitant]
     Route: 048
     Dates: start: 20110408
  3. REMICADE [Suspect]
     Indication: COLITIS ULCERATIVE
     Dosage: ALSO REPORTED AS 320 MG
     Route: 042
     Dates: start: 20110222
  4. REMICADE [Suspect]
     Route: 042
     Dates: start: 20110523
  5. REMICADE [Suspect]
     Route: 042
  6. HYDROCORTISONE [Concomitant]
     Indication: PREMEDICATION
     Route: 042
     Dates: start: 20110408
  7. ACETAMINOPHEN [Concomitant]
     Indication: PREMEDICATION
     Route: 048
     Dates: start: 20110523
  8. ACETAMINOPHEN [Concomitant]
     Route: 048
     Dates: start: 20110408
  9. HYDROCORTISONE [Concomitant]
     Route: 042
     Dates: start: 20110523
  10. CHLORPHENIRAMINE MALEATE [Concomitant]
     Indication: PREMEDICATION
     Route: 048
     Dates: start: 20110523
  11. REMICADE [Suspect]
     Dosage: ALSO REPORTED AS 320 MG
     Route: 042
     Dates: start: 20090423

REACTIONS (6)
  - DRUG EXPOSURE DURING PREGNANCY [None]
  - PYREXIA [None]
  - FLUSHING [None]
  - TACHYCARDIA [None]
  - PALPITATIONS [None]
  - INFUSION RELATED REACTION [None]
